FAERS Safety Report 5322943-7 (Version None)
Quarter: 2007Q2

REPORT INFORMATION
  Report Type: 
  Country: None (occurrence: None)
  Receive Date: 20070511
  Receipt Date: 20070502
  Transmission Date: 20071010
  Serious: Yes (Hospitalization)
  Sender: FDA-Public Use
  Company Number: US-MERCK-0705USA02122

PATIENT
  Age: 41 Year
  Sex: Male

DRUGS (2)
  1. ZOCOR [Suspect]
     Route: 065
     Dates: end: 20020101
  2. TRICHLOROACETIC ACID [Suspect]
     Route: 065
     Dates: end: 20020101

REACTIONS (2)
  - MYOSITIS [None]
  - RHABDOMYOLYSIS [None]
